FAERS Safety Report 25691092 (Version 1)
Quarter: 2025Q3

REPORT INFORMATION
  Report Type: Spontaneous
  Country: CN (occurrence: CN)
  Receive Date: 20250818
  Receipt Date: 20250818
  Transmission Date: 20251020
  Serious: Yes (Hospitalization)
  Sender: BAYER HEALTHCARE PHARMACEUTICALS INC.
  Company Number: CN-BAYER-2025A108999

PATIENT
  Age: 56 Year
  Sex: Male
  Weight: 66 kg

DRUGS (2)
  1. KERENDIA [Suspect]
     Active Substance: FINERENONE
     Indication: Nephrotic syndrome
     Dosage: 10 MG, QD
     Route: 048
     Dates: start: 20250726, end: 20250727
  2. HERBALS [Concomitant]
     Active Substance: HERBALS
     Indication: Therapeutic procedure
     Dosage: 1 DF, TID
     Route: 048
     Dates: start: 20250726, end: 20250804

REACTIONS (3)
  - Rash erythematous [Recovered/Resolved]
  - Product prescribing issue [None]
  - Product use in unapproved indication [None]

NARRATIVE: CASE EVENT DATE: 20250726
